FAERS Safety Report 7110537-2 (Version None)
Quarter: 2010Q4

REPORT INFORMATION
  Report Type: 
  Country: None (occurrence: None)
  Receive Date: 20101118
  Receipt Date: 20101110
  Transmission Date: 20110411
  Serious: Yes (Death, Other)
  Sender: FDA-Public Use
  Company Number: JP-ROCHE-692691

PATIENT
  Age: 56 Year
  Sex: Male

DRUGS (5)
  1. AVASTIN [Suspect]
     Indication: LUNG ADENOCARCINOMA
     Route: 041
     Dates: start: 20100217, end: 20100907
  2. IRINOTECAN HCL [Suspect]
     Indication: LUNG ADENOCARCINOMA
     Dosage: NOTE: DOSAGE IS UNCERTAIN
     Route: 041
  3. HORMONES [Suspect]
     Dosage: DRUG: ADRENAL HORMONE PREPARATIONS
     Route: 065
  4. CARBOPLATIN [Concomitant]
     Route: 041
  5. PACLITAXEL [Concomitant]
     Dosage: NOTE: UNCERTAINTY
     Route: 041

REACTIONS (4)
  - HAEMATOCHEZIA [None]
  - OCCULT BLOOD [None]
  - SHOCK HAEMORRHAGIC [None]
  - SMALL INTESTINAL HAEMORRHAGE [None]
